FAERS Safety Report 8854142 (Version 1)
Quarter: 2012Q4

REPORT INFORMATION
  Report Type: Spontaneous
  Country: US (occurrence: None)
  Receive Date: 20121019
  Receipt Date: 20121019
  Transmission Date: 20130627
  Serious: Yes (Other)
  Sender: FDA-Public Use
  Company Number: None

PATIENT
  Age: 80 Year
  Sex: Female
  Weight: 87.3 kg

DRUGS (1)
  1. XARELTO [Suspect]
     Indication: AFIB
     Dates: start: 201202, end: 201209

REACTIONS (1)
  - Hepatic enzyme increased [None]
